FAERS Safety Report 4506379-4 (Version None)
Quarter: 2004Q4

REPORT INFORMATION
  Report Type: 
  Country: None (occurrence: None)
  Receive Date: 20041025
  Receipt Date: 20040109
  Transmission Date: 20050328
  Serious: Yes (Hospitalization)
  Sender: FDA-Public Use
  Company Number: US-JNJFOC-20030902756

PATIENT
  Age: 48 Year
  Sex: Female
  Weight: 58.0604 kg

DRUGS (15)
  1. REMICADE [Suspect]
     Indication: ANKYLOSING SPONDYLITIS
     Dosage: INTRAVENOUS
     Route: 042
     Dates: start: 20030702
  2. REMICADE [Suspect]
     Indication: INFLAMMATORY BOWEL DISEASE
     Dosage: INTRAVENOUS
     Route: 042
     Dates: start: 20030702
  3. REMICADE [Suspect]
     Indication: ANKYLOSING SPONDYLITIS
     Dosage: INTRAVENOUS
     Route: 042
     Dates: start: 20030827
  4. REMICADE [Suspect]
     Indication: INFLAMMATORY BOWEL DISEASE
     Dosage: INTRAVENOUS
     Route: 042
     Dates: start: 20030827
  5. REMICADE [Suspect]
     Indication: ANKYLOSING SPONDYLITIS
     Dosage: INTRAVENOUS
     Route: 042
     Dates: start: 20030909
  6. REMICADE [Suspect]
     Indication: INFLAMMATORY BOWEL DISEASE
     Dosage: INTRAVENOUS
     Route: 042
     Dates: start: 20030909
  7. REMICADE [Suspect]
     Indication: ANKYLOSING SPONDYLITIS
     Dosage: INTRAVENOUS
     Route: 042
     Dates: start: 20030912
  8. REMICADE [Suspect]
     Indication: INFLAMMATORY BOWEL DISEASE
     Dosage: INTRAVENOUS
     Route: 042
     Dates: start: 20030912
  9. REMICADE [Suspect]
     Indication: ANKYLOSING SPONDYLITIS
     Dosage: INTRAVENOUS
     Route: 042
     Dates: start: 20031104
  10. REMICADE [Suspect]
     Indication: INFLAMMATORY BOWEL DISEASE
     Dosage: INTRAVENOUS
     Route: 042
     Dates: start: 20031104
  11. PAXIL [Concomitant]
  12. PRILOSEC [Concomitant]
  13. MULTI VITAMIN (MULTIVITAMINS) [Concomitant]
  14. METHOTREXATE SODIUM [Concomitant]
  15. FOLIC ACID [Concomitant]

REACTIONS (9)
  - ABDOMINAL ABSCESS [None]
  - ARTHRALGIA [None]
  - BLOOD PRESSURE DECREASED [None]
  - BODY TEMPERATURE INCREASED [None]
  - CHEST DISCOMFORT [None]
  - DYSPNOEA [None]
  - FLUSHING [None]
  - STAPHYLOCOCCAL INFECTION [None]
  - THROAT TIGHTNESS [None]
